FAERS Safety Report 9270144 (Version 1)
Quarter: 2013Q2

REPORT INFORMATION
  Report Type: Spontaneous
  Country: US (occurrence: US)
  Receive Date: 20130503
  Receipt Date: 20130503
  Transmission Date: 20140414
  Serious: Yes (Other)
  Sender: FDA-Public Use
  Company Number: US-SANOFI-AVENTIS-2013SA041297

PATIENT
  Age: 54 Year
  Sex: Female
  Weight: 74.84 kg

DRUGS (5)
  1. PLAVIX [Suspect]
     Indication: PRODUCT USED FOR UNKNOWN INDICATION
     Dates: start: 2011
  2. HYDROXYZINE [Concomitant]
  3. LOPRESSOR [Concomitant]
     Indication: HYPERTENSION
  4. ZESTRIL [Concomitant]
  5. ZOCOR [Concomitant]

REACTIONS (17)
  - Diarrhoea [Unknown]
  - Asthenia [Unknown]
  - Feeling abnormal [Unknown]
  - Malaise [Unknown]
  - Dyspnoea [Unknown]
  - Fear of death [Unknown]
  - Cardiac disorder [Unknown]
  - Angioedema [Unknown]
  - Eye swelling [Unknown]
  - Purpura [Unknown]
  - Pruritus [Unknown]
  - Drug hypersensitivity [Unknown]
  - Skin exfoliation [Unknown]
  - Motion sickness [Unknown]
  - Vomiting [Unknown]
  - Syncope [Unknown]
  - Muscular weakness [Unknown]
